FAERS Safety Report 5374176-6 (Version None)
Quarter: 2007Q2

REPORT INFORMATION
  Report Type: 
  Country: None (occurrence: None)
  Receive Date: 20070627
  Receipt Date: 20040407
  Transmission Date: 20071010
  Serious: Yes (Other)
  Sender: FDA-Public Use
  Company Number: 470394

PATIENT
  Age: 60 Year
  Sex: Male

DRUGS (1)
  1. XELODA [Suspect]
     Indication: RECTAL CANCER
     Dosage: 1250 MG/M2 2 PER DAY ORAL
     Route: 048

REACTIONS (2)
  - CARDIOTOXICITY [None]
  - CHEST PAIN [None]
